FAERS Safety Report 23657151 (Version 2)
Quarter: 2024Q2

REPORT INFORMATION
  Report Type: Spontaneous
  Country: GB (occurrence: GB)
  Receive Date: 20240321
  Receipt Date: 20240406
  Transmission Date: 20240716
  Serious: Yes (Other)
  Sender: FDA-Public Use
  Company Number: None

PATIENT
  Age: 64 Year
  Sex: Female

DRUGS (6)
  1. ATORVASTATIN [Suspect]
     Active Substance: ATORVASTATIN
     Indication: Hypercholesterolaemia
  2. TRAMADOL [Concomitant]
     Active Substance: TRAMADOL\TRAMADOL HYDROCHLORIDE
     Dosage: 50 MG AS NECESSARY
  3. FOLIC ACID [Concomitant]
     Active Substance: FOLIC ACID
     Dosage: 5MG OD
  4. PROGESTERONE [Concomitant]
     Active Substance: PROGESTERONE
     Dosage: 100MG OD
  5. LOPERAMIDE [Concomitant]
     Active Substance: LOPERAMIDE
     Dosage: 6-10 MG TWICE A DAY
  6. PROGESTERONE [Concomitant]
     Active Substance: PROGESTERONE
     Dosage: 100MG OD

REACTIONS (1)
  - Intestinal obstruction [Recovered/Resolved]
